FAERS Safety Report 24679490 (Version 3)
Quarter: 2025Q3

REPORT INFORMATION
  Report Type: Report from Study
  Country: US (occurrence: US)
  Receive Date: 20241129
  Receipt Date: 20250807
  Transmission Date: 20251020
  Serious: Yes (Other)
  Sender: NOVARTIS
  Company Number: US-002147023-NVSC2024US227236

PATIENT
  Sex: Female

DRUGS (2)
  1. KISQALI [Suspect]
     Active Substance: RIBOCICLIB SUCCINATE
     Indication: Product used for unknown indication
     Dosage: 200 MG, BID
     Route: 065
     Dates: start: 20241110
  2. KISQALI [Suspect]
     Active Substance: RIBOCICLIB SUCCINATE
     Dosage: 200 MG, BID
     Route: 065

REACTIONS (6)
  - Breast cancer metastatic [Unknown]
  - Colon cancer metastatic [Unknown]
  - Small intestine carcinoma metastatic [Unknown]
  - Constipation [Unknown]
  - Rash [Unknown]
  - Inappropriate schedule of product administration [Unknown]
